FAERS Safety Report 6451336-4 (Version None)
Quarter: 2009Q4

REPORT INFORMATION
  Report Type: 
  Country: None (occurrence: None)
  Receive Date: 20091118
  Receipt Date: 20090528
  Transmission Date: 20100525
  Serious: Yes (Hospitalization)
  Sender: FDA-Public Use
  Company Number: 2009BI016551

PATIENT
  Age: 32 Year
  Sex: Male
  Weight: 90.7194 kg

DRUGS (1)
  1. TYSABRI [Suspect]
     Indication: MULTIPLE SCLEROSIS
     Dosage: 300 MG;QM;IV
     Route: 042
     Dates: start: 20080811

REACTIONS (5)
  - CLUMSINESS [None]
  - COGNITIVE DISORDER [None]
  - CONTUSION [None]
  - COORDINATION ABNORMAL [None]
  - MULTIPLE SCLEROSIS RELAPSE [None]
